FAERS Safety Report 24330282 (Version 2)
Quarter: 2025Q1

REPORT INFORMATION
  Report Type: Spontaneous
  Country: US (occurrence: US)
  Receive Date: 20240918
  Receipt Date: 20250117
  Transmission Date: 20250409
  Serious: Yes (Other)
  Sender: ENDO
  Company Number: US-ENDO USA, INC.-2024-000015

PATIENT
  Sex: Female

DRUGS (5)
  1. ACETAMINOPHEN\OXYCODONE HYDROCHLORIDE [Suspect]
     Active Substance: ACETAMINOPHEN\OXYCODONE HYDROCHLORIDE
     Indication: Neuropathy peripheral
     Route: 065
  2. PERCOCET [Suspect]
     Active Substance: ACETAMINOPHEN\OXYCODONE HYDROCHLORIDE
     Indication: Neuropathy peripheral
     Route: 065
  3. MORPHINE [Suspect]
     Active Substance: MORPHINE
     Indication: Neuropathy peripheral
     Route: 065
  4. OXYCODONE [Suspect]
     Active Substance: OXYCODONE
     Indication: Neuropathy peripheral
     Route: 065
  5. LYRICA [Suspect]
     Active Substance: PREGABALIN
     Indication: Neuropathy peripheral
     Route: 065

REACTIONS (2)
  - Dependence [Not Recovered/Not Resolved]
  - Ill-defined disorder [Not Recovered/Not Resolved]
